FAERS Safety Report 7090152-X (Version None)
Quarter: 2010Q4

REPORT INFORMATION
  Report Type: 
  Country: None (occurrence: None)
  Receive Date: 20101105
  Receipt Date: 20101105
  Transmission Date: 20110411
  Serious: Yes (Other)
  Sender: FDA-Public Use
  Company Number: None

PATIENT
  Sex: Female
  Weight: 9.5255 kg

DRUGS (1)
  1. HYLAND'S TEETHING TABLETS HYLAND'S [Suspect]
     Indication: TEETHING
     Dosage: 2-3 TABLETS EVERY 4HRS 047
     Dates: start: 20100801, end: 20101024

REACTIONS (2)
  - LETHARGY [None]
  - SOMNOLENCE [None]
